FAERS Safety Report 5719473-7 (Version None)
Quarter: 2008Q2

REPORT INFORMATION
  Report Type: 
  Country: None (occurrence: None)
  Receive Date: 20080428
  Receipt Date: 20080424
  Transmission Date: 20081010
  Serious: Yes (Death, Hospitalization)
  Sender: FDA-Public Use
  Company Number: US-GILEAD-2008-0015036

PATIENT
  Sex: Male
  Weight: 92.616 kg

DRUGS (8)
  1. LETAIRIS [Suspect]
     Indication: PULMONARY HYPERTENSION
     Route: 048
     Dates: start: 20070801, end: 20080412
  2. COUMADIN [Concomitant]
  3. PLAVIX [Concomitant]
  4. LASIX [Concomitant]
     Route: 048
     Dates: start: 20071126
  5. MICRO-K [Concomitant]
     Route: 048
  6. COMBIVENT [Concomitant]
  7. ADVAIR HFA [Concomitant]
  8. OXYGEN [Concomitant]
     Route: 055

REACTIONS (3)
  - INTERNATIONAL NORMALISED RATIO INCREASED [None]
  - INTERSTITIAL LUNG DISEASE [None]
  - UPPER GASTROINTESTINAL HAEMORRHAGE [None]
